FAERS Safety Report 19245600 (Version 1)
Quarter: 2021Q2

REPORT INFORMATION
  Report Type: Spontaneous
  Country: US (occurrence: US)
  Receive Date: 20210512
  Receipt Date: 20210512
  Transmission Date: 20210717
  Serious: No
  Sender: FDA-Public Use
  Company Number: US-BEH-2021131415

PATIENT
  Age: 61 Year
  Sex: Male

DRUGS (5)
  1. HIZENTRA [Suspect]
     Active Substance: HUMAN IMMUNOGLOBULIN G
     Indication: IMMUNODEFICIENCY COMMON VARIABLE
     Dosage: 8 GRAM, QW
     Route: 065
     Dates: start: 20200925
  2. MONTELUKAST [Concomitant]
     Active Substance: MONTELUKAST SODIUM
  3. LOSARTAN POTASSIUM. [Concomitant]
     Active Substance: LOSARTAN POTASSIUM
  4. SYMBICORT [Concomitant]
     Active Substance: BUDESONIDE\FORMOTEROL FUMARATE DIHYDRATE
  5. FLOMAX [Concomitant]
     Active Substance: TAMSULOSIN HYDROCHLORIDE

REACTIONS (1)
  - Infusion site erythema [Not Recovered/Not Resolved]

NARRATIVE: CASE EVENT DATE: 202104
